FAERS Safety Report 15020702 (Version 2)
Quarter: 2018Q2

REPORT INFORMATION
  Report Type: Spontaneous
  Country: US (occurrence: US)
  Receive Date: 20180618
  Receipt Date: 20180628
  Transmission Date: 20180711
  Serious: Yes (Hospitalization, Other)
  Sender: FDA-Public Use
  Company Number: US-APOTEX-2018AP015953

PATIENT
  Age: 48 Year
  Sex: Male

DRUGS (2)
  1. ALPRAZOLAM. [Suspect]
     Active Substance: ALPRAZOLAM
     Indication: PRODUCT USED FOR UNKNOWN INDICATION
     Dosage: UNK
     Route: 065
  2. HALOPERIDOL                        /00027402/ [Suspect]
     Active Substance: HALOPERIDOL
     Indication: DELIRIUM
     Route: 042

REACTIONS (3)
  - Drug abuse [Unknown]
  - Delirium [Recovering/Resolving]
  - Withdrawal syndrome [Recovering/Resolving]
